FAERS Safety Report 16466083 (Version 1)
Quarter: 2019Q2

REPORT INFORMATION
  Report Type: Other
  Country: US (occurrence: US)
  Receive Date: 20190621
  Receipt Date: 20190621
  Transmission Date: 20190711
  Serious: No
  Sender: FDA-Public Use
  Company Number: US-ACORDA-ACO_158987_2019

PATIENT
  Age: 49 Year
  Sex: Female

DRUGS (1)
  1. INBRIJA [Suspect]
     Active Substance: LEVODOPA
     Indication: ON AND OFF PHENOMENON
     Dosage: 2 CAPSULES (84 MG), PRN. DO NOT EXCEED 5 DOSES PER DAY
     Route: 048
     Dates: start: 201905

REACTIONS (2)
  - Burning sensation [Unknown]
  - Cough [Unknown]

NARRATIVE: CASE EVENT DATE: 20190528
